FAERS Safety Report 14043092 (Version 1)
Quarter: 2017Q4

REPORT INFORMATION
  Report Type: Spontaneous
  Country: US (occurrence: US)
  Receive Date: 20171004
  Receipt Date: 20171004
  Transmission Date: 20180321
  Serious: No
  Sender: FDA-Public Use
  Company Number: US-BIOMARINAP-US-2017-115610

PATIENT
  Sex: Male
  Weight: 95.24 kg

DRUGS (2)
  1. KUVAN [Suspect]
     Active Substance: SAPROPTERIN DIHYDROCHLORIDE
     Indication: TETRAHYDROBIOPTERIN DEFICIENCY
     Dosage: 1000 MG, QD
     Route: 065
  2. KUVAN [Suspect]
     Active Substance: SAPROPTERIN DIHYDROCHLORIDE
     Dosage: 900 MG, QD
     Route: 065

REACTIONS (2)
  - Aggression [Recovering/Resolving]
  - Off label use [Unknown]
